FAERS Safety Report 4628203-1 (Version None)
Quarter: 2005Q2

REPORT INFORMATION
  Report Type: 
  Country: None (occurrence: None)
  Receive Date: 20050406
  Receipt Date: 20050325
  Transmission Date: 20051028
  Serious: Yes (Death)
  Sender: FDA-Public Use
  Company Number: AU-SANOFI-SYNTHELABO-A01200501830

PATIENT
  Age: 29 Year
  Sex: Female

DRUGS (10)
  1. HYDROXYCHLOROQUINE SULFATE [Suspect]
     Indication: DRUG USE FOR UNKNOWN INDICATION
     Dosage: UNK
     Route: 048
     Dates: start: 19960101, end: 19991201
  2. CHLOROQUINE [Suspect]
     Indication: CONNECTIVE TISSUE DISORDER
     Dosage: 250 MG
     Route: 065
     Dates: start: 19991201
  3. PREDNISOLONE [Suspect]
     Indication: CONNECTIVE TISSUE DISORDER
     Dosage: 5 MG
     Route: 048
     Dates: start: 19960101, end: 19991001
  4. PREDNISOLONE [Suspect]
     Dosage: 5 MG
     Route: 048
     Dates: start: 19960101, end: 19991001
  5. PREDNISOLONE [Suspect]
     Route: 065
     Dates: start: 19990101, end: 19991201
  6. PREDNISOLONE [Suspect]
     Route: 065
     Dates: start: 19990101, end: 19991201
  7. PREDNISOLONE [Suspect]
     Dosage: 50 MG
     Route: 065
     Dates: start: 19991201, end: 20000101
  8. PREDNISOLONE [Suspect]
     Dosage: 50 MG
     Route: 065
     Dates: start: 19991201, end: 20000101
  9. PREDNISOLONE [Suspect]
     Route: 065
     Dates: start: 20000101
  10. PREDNISOLONE [Suspect]
     Route: 065
     Dates: start: 20000101

REACTIONS (6)
  - CONDITION AGGRAVATED [None]
  - HEADACHE [None]
  - HEPATIC FAILURE [None]
  - HEPATITIS B [None]
  - MENINGITIS ASEPTIC [None]
  - MULTI-ORGAN FAILURE [None]
